FAERS Safety Report 6579909-9 (Version None)
Quarter: 2010Q1

REPORT INFORMATION
  Report Type: 
  Country: None (occurrence: None)
  Receive Date: 20100212
  Receipt Date: 20100204
  Transmission Date: 20100710
  Serious: Yes (Hospitalization)
  Sender: FDA-Public Use
  Company Number: GXKR2010GA01512

PATIENT
  Age: 17 Year
  Sex: Female

DRUGS (5)
  1. FENTANYL [Suspect]
     Dosage: 200 UG, UNK
     Route: 065
  2. SUCCINYLCHOLINE CHLORIDE [Suspect]
     Indication: INDUCTION OF ANAESTHESIA
     Dosage: 1 MG/KG, UNK
     Route: 065
  3. THIOPENTAL SODIUM [Suspect]
     Indication: INDUCTION OF ANAESTHESIA
     Dosage: 5 MG/KG, UNK
  4. ISOFLURANE [Suspect]
     Indication: MAINTENANCE OF ANAESTHESIA
  5. VECURONIUM BROMIDE [Concomitant]
     Route: 065

REACTIONS (2)
  - TORSADE DE POINTES [None]
  - VENTRICULAR TACHYARRHYTHMIA [None]
